FAERS Safety Report 25930866 (Version 2)
Quarter: 2025Q4

REPORT INFORMATION
  Report Type: Spontaneous
  Country: US (occurrence: US)
  Receive Date: 20251016
  Receipt Date: 20251020
  Transmission Date: 20260117
  Serious: No
  Sender: SANOFI AVENTIS
  Company Number: US-SA-2025SA306817

PATIENT
  Age: 46 Year
  Sex: Female

DRUGS (2)
  1. TZIELD [Suspect]
     Active Substance: TEPLIZUMAB-MZWV
     Dosage: 790 UG, QD
     Route: 065
  2. TZIELD [Suspect]
     Active Substance: TEPLIZUMAB-MZWV
     Dosage: 1627.4 UG, QD
     Route: 065

REACTIONS (2)
  - Migraine [Unknown]
  - Rash [Unknown]
